FAERS Safety Report 18511464 (Version 2)
Quarter: 2020Q4

REPORT INFORMATION
  Report Type: Spontaneous
  Country: US (occurrence: US)
  Receive Date: 20201117
  Receipt Date: 20201211
  Transmission Date: 20210114
  Serious: Yes (Hospitalization, Other)
  Sender: FDA-Public Use
  Company Number: US-UPSHER-SMITH LABORATORIES, LLC-2020USL00610

PATIENT
  Age: 1 Year
  Sex: Female
  Weight: 12.7 kg

DRUGS (14)
  1. CLOBAZAM. [Concomitant]
     Active Substance: CLOBAZAM
     Dosage: UNK MG
  2. SIMILAC ADVANCE WITH IRON [Concomitant]
  3. HYDROCORTISONE. [Concomitant]
     Active Substance: HYDROCORTISONE
  4. HYDROCORTISONE. [Concomitant]
     Active Substance: HYDROCORTISONE
  5. CUVPOSA [Concomitant]
     Active Substance: GLYCOPYRROLATE
  6. COMPLEAT PEDIATRIC REDUCED CAL 0.03-0.6 GRAM-KCAL/ML LIIQD [Concomitant]
  7. FAMOTIDINE. [Concomitant]
     Active Substance: FAMOTIDINE
  8. PHENOBARBITAL. [Concomitant]
     Active Substance: PHENOBARBITAL
  9. LEVOTHYROXINE. [Concomitant]
     Active Substance: LEVOTHYROXINE
  10. RUFINAMIDE [Concomitant]
     Active Substance: RUFINAMIDE
  11. VIGADRONE [Suspect]
     Active Substance: VIGABATRIN
     Dosage: 650 MG, 2X/DAY
     Dates: start: 202001
  12. GENOTROPIN [Concomitant]
     Active Substance: SOMATROPIN
  13. SULFAMETHOXAZOLE-TRIMETHOPRIM [Concomitant]
     Active Substance: SULFAMETHOXAZOLE\TRIMETHOPRIM
  14. CLONAZEPAM DISINTEGRATING TABLET [Concomitant]

REACTIONS (7)
  - Urinary retention [Recovered/Resolved]
  - Seizure [Recovered/Resolved]
  - Enterovirus infection [Unknown]
  - Rhinovirus infection [Unknown]
  - Acute respiratory failure [Recovering/Resolving]
  - COVID-19 [Recovered/Resolved]
  - Weight increased [Unknown]

NARRATIVE: CASE EVENT DATE: 2020
